FAERS Safety Report 13284229 (Version 2)
Quarter: 2017Q1

REPORT INFORMATION
  Report Type: Spontaneous
  Country: KR (occurrence: KR)
  Receive Date: 20170301
  Receipt Date: 20170302
  Transmission Date: 20170428
  Serious: Yes (Other)
  Sender: FDA-Public Use
  Company Number: KR-JNJFOC-20170221421

PATIENT

DRUGS (3)
  1. DOXORUBICIN HYDROCHLORIDE. [Suspect]
     Active Substance: DOXORUBICIN HYDROCHLORIDE
     Indication: HEPATOCELLULAR CARCINOMA
     Route: 013
  2. ENTECAVIR. [Concomitant]
     Active Substance: ENTECAVIR
     Indication: PREMEDICATION
     Route: 065
  3. DOXORUBICIN HYDROCHLORIDE. [Suspect]
     Active Substance: DOXORUBICIN HYDROCHLORIDE
     Indication: HEPATOCELLULAR CARCINOMA
     Route: 013

REACTIONS (9)
  - Hepatic encephalopathy [Unknown]
  - Blood bilirubin increased [Unknown]
  - Off label use [Unknown]
  - Hepatitis [Unknown]
  - Product use issue [Unknown]
  - Ascites [Unknown]
  - Hepatitis B [Unknown]
  - Incorrect route of drug administration [Unknown]
  - Child-Pugh-Turcotte score increased [Unknown]
